FAERS Safety Report 6366242-3 (Version None)
Quarter: 2009Q3

REPORT INFORMATION
  Report Type: 
  Country: None (occurrence: None)
  Receive Date: 20090921
  Receipt Date: 20090908
  Transmission Date: 20100115
  Serious: Yes (Other)
  Sender: FDA-Public Use
  Company Number: US-JNJFOC-20090903051

PATIENT
  Sex: Male

DRUGS (1)
  1. REMICADE [Suspect]
     Indication: COLITIS ULCERATIVE
     Dosage: APPROXIMATELY 6 MONTHS OF INFLIXIMAB
     Route: 042
     Dates: start: 20090101

REACTIONS (2)
  - ARTHRALGIA [None]
  - ECHOCARDIOGRAM ABNORMAL [None]
